FAERS Safety Report 24290908 (Version 1)
Quarter: 2024Q3

REPORT INFORMATION
  Report Type: Spontaneous
  Country: US (occurrence: None)
  Receive Date: 20240905
  Receipt Date: 20240905
  Transmission Date: 20241016
  Serious: Yes (Hospitalization)
  Sender: Public
  Company Number: None

PATIENT
  Sex: Female

DRUGS (1)
  1. KESIMPTA [Suspect]
     Active Substance: OFATUMUMAB
     Indication: Multiple sclerosis
     Dosage: OTHER STRENGTH : 20 MG/0.4ML;?
     Route: 058
     Dates: start: 20240206

REACTIONS (3)
  - Fall [None]
  - Mobility decreased [None]
  - Renal disorder [None]
